FAERS Safety Report 9958695 (Version 1)
Quarter: 2014Q1

REPORT INFORMATION
  Report Type: Spontaneous
  Country: PL (occurrence: None)
  Receive Date: 20140228
  Receipt Date: 20140228
  Transmission Date: 20141002
  Serious: Yes (Hospitalization)
  Sender: FDA-Public Use
  Company Number: IMP_07477_2014

PATIENT
  Age: 31 Year
  Sex: Male

DRUGS (9)
  1. CHLOROQUINE [Suspect]
     Indication: SYSTEMIC LUPUS ERYTHEMATOSUS
     Dosage: (125 MG BID), (250 MG, DAILY)
  2. METHLYPREDNISOLONE [Concomitant]
  3. PERAZINE [Concomitant]
  4. MIRTAZAPINE [Concomitant]
  5. HYDROXYZINE [Concomitant]
  6. HYDROXYCHLOROQUINE [Concomitant]
  7. QUETIAPINE [Concomitant]
  8. LAMOTRIGINE [Concomitant]
  9. CLORAZEPATE DIPOTASSIUM [Concomitant]

REACTIONS (8)
  - Suicidal ideation [None]
  - Major depression [None]
  - Low density lipoprotein increased [None]
  - Blood cholesterol increased [None]
  - Platelet count decreased [None]
  - Mania [None]
  - Bipolar disorder [None]
  - Condition aggravated [None]
